FAERS Safety Report 4892148-2 (Version None)
Quarter: 2006Q1

REPORT INFORMATION
  Report Type: 
  Country: None (occurrence: None)
  Receive Date: 20060126
  Receipt Date: 20060117
  Transmission Date: 20060701
  Serious: Yes (Life-Threatening, Hospitalization)
  Sender: FDA-Public Use
  Company Number: JP-GILEAD-2006-0009118

PATIENT
  Sex: Male

DRUGS (11)
  1. VIREAD [Suspect]
     Indication: HIV INFECTION
     Route: 048
     Dates: start: 20040923, end: 20050208
  2. EPIVIR [Suspect]
     Indication: HIV INFECTION
     Route: 048
     Dates: start: 20040712, end: 20050208
  3. EPIVIR [Suspect]
     Route: 048
     Dates: start: 19980320, end: 20040711
  4. EPIVIR [Suspect]
     Route: 048
     Dates: start: 19960705, end: 19980222
  5. KALETRA [Suspect]
     Indication: HIV INFECTION
     Route: 048
     Dates: start: 20050112, end: 20050208
  6. FORTOVASE [Concomitant]
     Indication: HIV INFECTION
     Dates: start: 20000620, end: 20050111
  7. NORVIR [Concomitant]
     Indication: HIV INFECTION
     Dates: start: 19980320, end: 20050111
  8. NORVIR [Concomitant]
     Dates: start: 19980304, end: 19980308
  9. SEROSTIM [Concomitant]
     Dates: start: 20041018, end: 20050206
  10. RECOMBINATE [Concomitant]
     Dates: start: 20040401, end: 20050219
  11. PROPLEX ST [Concomitant]
     Dates: start: 20041126, end: 20050219

REACTIONS (3)
  - HEPATIC CIRRHOSIS [None]
  - SEPTIC SHOCK [None]
  - STAPHYLOCOCCAL INFECTION [None]
